FAERS Safety Report 9491000 (Version 1)
Quarter: 2013Q3

REPORT INFORMATION
  Report Type: Spontaneous
  Country: US (occurrence: US)
  Receive Date: 20130830
  Receipt Date: 20130830
  Transmission Date: 20140515
  Serious: No
  Sender: FDA-Public Use
  Company Number: US-PFIZER INC-2013248741

PATIENT
  Age: 47 Year
  Sex: 0

DRUGS (9)
  1. CELEBREX [Suspect]
     Dosage: 200 MG (1 CAPSULE) ONCE DAILY WITH FOOD FOR 90 DAYS
     Route: 048
     Dates: start: 20130729
  2. CYCLOBENZAPRINE HYDROCHLORIDE [Concomitant]
     Dosage: 1/2, (ONE HALF) TO ONE TABLET TWO TIMES DAILY (STRENGTH:10MG)
     Route: 048
     Dates: start: 20130731
  3. ACIPHEX [Concomitant]
     Dosage: 20 MG (1 TABLET) EVERY MORNING FOR 90 DAYS
     Route: 048
     Dates: start: 20130729
  4. FLUOXETINE HYDROCHLORIDE [Concomitant]
     Dosage: 20 MG (1 CAPSULE) ONCE DAILY
     Route: 048
  5. ALPRAZOLAM [Concomitant]
     Dosage: 0.5 MG (1 TABLET) ONCE DAILY
     Route: 048
  6. ASPIRIN [Concomitant]
     Dosage: 81 MG (1 TABLET) ONCE DAILY
     Route: 048
  7. RANITIDINE HYDROCHLORIDE [Concomitant]
     Dosage: 450 MG (3 CAPSULES) ONCE DAILY
     Route: 048
  8. VITAMIN D [Concomitant]
     Dosage: 2000 MG
  9. HYDROCODONE-ACETAMINOPHEN [Concomitant]
     Dosage: 5-500MG (1 TABLET) THREE TIMES DAILY AS NEEDED
     Dates: start: 20130729

REACTIONS (1)
  - Abdominal pain upper [Unknown]
